FAERS Safety Report 7442299-3 (Version None)
Quarter: 2011Q2

REPORT INFORMATION
  Report Type: 
  Country: None (occurrence: None)
  Receive Date: 20110428
  Receipt Date: 20110419
  Transmission Date: 20111010
  Serious: Yes (Hospitalization, Disabling, Other)
  Sender: FDA-Public Use
  Company Number: US-ROCHE-393401

PATIENT
  Sex: Male
  Weight: 72.6 kg

DRUGS (2)
  1. ACCUTANE [Suspect]
     Route: 065
     Dates: start: 19880701, end: 19890101
  2. ACCUTANE [Suspect]
     Indication: ACNE
     Route: 065
     Dates: start: 19860101, end: 19870101

REACTIONS (15)
  - PROCTITIS ULCERATIVE [None]
  - MULTI-ORGAN DISORDER [None]
  - ANXIETY [None]
  - RECTAL HAEMORRHAGE [None]
  - SUICIDAL IDEATION [None]
  - HYPOAESTHESIA [None]
  - INFLAMMATORY BOWEL DISEASE [None]
  - GASTROINTESTINAL DISORDER [None]
  - COLITIS ULCERATIVE [None]
  - INTESTINAL HAEMORRHAGE [None]
  - COLITIS [None]
  - CROHN'S DISEASE [None]
  - DEPRESSION [None]
  - SLEEP APNOEA SYNDROME [None]
  - CHEST PAIN [None]
